FAERS Safety Report 6264094-3 (Version None)
Quarter: 2009Q3

REPORT INFORMATION
  Report Type: 
  Country: None (occurrence: None)
  Receive Date: 20090710
  Receipt Date: 20090702
  Transmission Date: 20100115
  Serious: Yes (Death, Hospitalization)
  Sender: FDA-Public Use
  Company Number: US-ABBOTT-09P-163-0583137-00

PATIENT
  Sex: Male

DRUGS (3)
  1. TRICOR [Suspect]
     Indication: BLOOD TRIGLYCERIDES INCREASED
     Route: 048
     Dates: end: 20061101
  2. PREDNISONE [Concomitant]
     Indication: CROHN'S DISEASE
  3. ENCORT [Concomitant]
     Indication: CROHN'S DISEASE

REACTIONS (3)
  - BLOOD TRIGLYCERIDES ABNORMAL [None]
  - CROHN'S DISEASE [None]
  - DIARRHOEA [None]
